FAERS Safety Report 20564201 (Version 2)
Quarter: 2022Q1

REPORT INFORMATION
  Report Type: Spontaneous
  Country: IN (occurrence: None)
  Receive Date: 20220308
  Receipt Date: 20220321
  Transmission Date: 20220423
  Serious: Yes (Hospitalization)
  Sender: FDA-Public Use
  Company Number: IN-Unichem Pharmaceuticals (USA) Inc-UCM202202-000199

PATIENT
  Age: 46 Year
  Sex: Male

DRUGS (5)
  1. BACLOFEN [Suspect]
     Active Substance: BACLOFEN
     Indication: Hiccups
  2. ISONIAZID [Concomitant]
     Active Substance: ISONIAZID
     Indication: Lymphadenopathy
     Dosage: UNKNOWN
  3. RIFAMPIN [Concomitant]
     Active Substance: RIFAMPIN
     Indication: Lymphadenopathy
     Dosage: UNKNOWN
  4. PYRAZINAMIDE [Concomitant]
     Active Substance: PYRAZINAMIDE
     Indication: Lymphadenopathy
     Dosage: UNKNOWN
  5. ETHAMBUTOL [Concomitant]
     Active Substance: ETHAMBUTOL HYDROCHLORIDE
     Indication: Lymphadenopathy
     Dosage: UNKNOWN

REACTIONS (4)
  - Toxic encephalopathy [Recovered/Resolved]
  - Abdominal pain upper [Recovered/Resolved]
  - Chest pain [Unknown]
  - Product use in unapproved indication [Unknown]
